FAERS Safety Report 9213141 (Version 1)
Quarter: 2013Q2

REPORT INFORMATION
  Report Type: Spontaneous
  Country: US (occurrence: US)
  Receive Date: 20130405
  Receipt Date: 20130405
  Transmission Date: 20140414
  Serious: No
  Sender: FDA-Public Use
  Company Number: US-PFIZER INC-2013107542

PATIENT
  Age: 50 Year
  Sex: Female
  Weight: 62.1 kg

DRUGS (8)
  1. LYRICA [Suspect]
     Indication: NERVE INJURY
     Dosage: 75 MG, 2X/DAY
     Route: 048
     Dates: end: 20130302
  2. LYRICA [Suspect]
     Indication: NERVE INJURY
  3. LEVOTHYROXINE [Concomitant]
     Indication: THYROID DISORDER
     Dosage: UNK
  4. TOPROL [Concomitant]
     Indication: BLOOD PRESSURE ABNORMAL
     Dosage: UNK
  5. EFFEXOR [Concomitant]
     Indication: DEPRESSION
     Dosage: UNK
  6. XANAX [Concomitant]
     Indication: ANXIETY
     Dosage: UNK
  7. LORTAB [Concomitant]
     Indication: PAIN
     Dosage: UNK
  8. SOMA [Concomitant]
     Dosage: UNK

REACTIONS (1)
  - Influenza [Recovered/Resolved]
